FAERS Safety Report 10703618 (Version 1)
Quarter: 2015Q1

REPORT INFORMATION
  Report Type: Spontaneous
  Country: IT (occurrence: None)
  Receive Date: 20150108
  Receipt Date: 20150108
  Transmission Date: 20150721
  Serious: Yes (Hospitalization)
  Sender: FDA-Public Use
  Company Number: IT2014GSK045400

PATIENT
  Age: 74 Year
  Sex: Female

DRUGS (7)
  1. EUTIMIL [Suspect]
     Active Substance: PAROXETINE HYDROCHLORIDE
     Indication: DRUG ABUSE
     Route: 048
     Dates: start: 20141221, end: 20141225
  2. CARBOLITHIUM (LITHIUM CARBONATE) CAPSULE, HARD, 150 MG [Concomitant]
     Active Substance: LITHIUM CARBONATE
  3. TAVOR [Suspect]
     Active Substance: LORAZEPAM
     Indication: DRUG ABUSE
     Route: 048
     Dates: start: 20141221, end: 20141225
  4. SULAMID [Suspect]
     Active Substance: AMISULPRIDE
     Indication: DRUG ABUSE
     Route: 048
     Dates: start: 20141221, end: 20141225
  5. MELATONIN (MELATONIN) [Concomitant]
     Active Substance: MELATONIN
  6. DEPAKENE [Concomitant]
     Active Substance: VALPROIC ACID
  7. TACHIPIRINA (PARACETAMOL) [Concomitant]

REACTIONS (5)
  - Drug abuse [None]
  - Confusional state [None]
  - Bradyphrenia [None]
  - Bradykinesia [None]
  - Extrapyramidal disorder [None]

NARRATIVE: CASE EVENT DATE: 20141221
